FAERS Safety Report 14069169 (Version 1)
Quarter: 2017Q4

REPORT INFORMATION
  Report Type: Report from Study
  Country: US (occurrence: US)
  Receive Date: 20171010
  Receipt Date: 20171010
  Transmission Date: 20180321
  Serious: No
  Sender: FDA-Public Use
  Company Number: PHEH2017US032561

PATIENT
  Sex: Male

DRUGS (1)
  1. OMNITROPE [Suspect]
     Active Substance: SOMATROPIN
     Indication: HYPOPITUITARISM
     Dosage: 2.2 MG, QD (X 7 DAYS/WEEKS)
     Route: 058
     Dates: start: 201703

REACTIONS (3)
  - Gynaecomastia [Recovering/Resolving]
  - Lip injury [Unknown]
  - Animal bite [Unknown]
